FAERS Safety Report 8524394-0 (Version None)
Quarter: 2012Q3

REPORT INFORMATION
  Report Type: 
  Country: None (occurrence: None)
  Receive Date: 20120716
  Receipt Date: 20120716
  Transmission Date: 20120928
  Serious: Yes (Hospitalization)
  Sender: FDA-Public Use
  Company Number: None

PATIENT
  Age: 91 Year
  Sex: Male
  Weight: 71.3 kg

DRUGS (1)
  1. WARFARIN SODIUM [Suspect]
     Dosage: MG PO
     Route: 048
     Dates: start: 20110919

REACTIONS (2)
  - INTERNATIONAL NORMALISED RATIO INCREASED [None]
  - HAEMATURIA [None]
